FAERS Safety Report 21564264 (Version 5)
Quarter: 2023Q1

REPORT INFORMATION
  Report Type: Report from Study
  Country: US (occurrence: US)
  Receive Date: 20221108
  Receipt Date: 20230209
  Transmission Date: 20230418
  Serious: No
  Sender: FDA-Public Use
  Company Number: US-ABBVIE-22K-163-4448786-00

PATIENT
  Age: 64 Year
  Sex: Male

DRUGS (5)
  1. HUMIRA [Suspect]
     Active Substance: ADALIMUMAB
     Indication: Colitis ulcerative
     Dosage: CITRATE FREE?FORM STRENGTH: 40 MG
     Route: 058
     Dates: start: 2022
  2. HUMIRA [Suspect]
     Active Substance: ADALIMUMAB
     Dosage: CITRATE FREE?FORM STRENGTH: 40 MG
     Route: 058
  3. HUMIRA [Suspect]
     Active Substance: ADALIMUMAB
     Dosage: CITRATE FREE?FORM STRENGTH: 40 MG
     Route: 058
  4. HUMIRA [Suspect]
     Active Substance: ADALIMUMAB
     Dosage: CITRATE FREE
     Route: 058
  5. HUMIRA [Suspect]
     Active Substance: ADALIMUMAB
     Dosage: CF?FORM STRENGTH: 40MG
     Route: 058

REACTIONS (16)
  - Haemorrhoids [Not Recovered/Not Resolved]
  - Wound complication [Unknown]
  - Colitis ulcerative [Not Recovered/Not Resolved]
  - Haemorrhage [Not Recovered/Not Resolved]
  - Bacterial infection [Unknown]
  - Ulcer [Recovered/Resolved]
  - Hypertonic bladder [Not Recovered/Not Resolved]
  - Eructation [Not Recovered/Not Resolved]
  - Back pain [Not Recovered/Not Resolved]
  - Ulcer [Unknown]
  - Constipation [Unknown]
  - Muscle spasms [Unknown]
  - Therapeutic product effect decreased [Not Recovered/Not Resolved]
  - Feeling hot [Unknown]
  - Rash macular [Unknown]
  - Night sweats [Unknown]

NARRATIVE: CASE EVENT DATE: 20220701
